FAERS Safety Report 7577810-5 (Version None)
Quarter: 2011Q2

REPORT INFORMATION
  Report Type: 
  Country: None (occurrence: None)
  Receive Date: 20110628
  Receipt Date: 20110615
  Transmission Date: 20111010
  Serious: Yes (Hospitalization)
  Sender: FDA-Public Use
  Company Number: PHHY2011US48261

PATIENT
  Sex: Female
  Weight: 58.05 kg

DRUGS (4)
  1. EXJADE [Suspect]
     Indication: SICKLE CELL ANAEMIA
     Dosage: 1000 MG, QD
     Route: 048
     Dates: start: 20081126
  2. FENTANYL [Concomitant]
     Dosage: 25 MCG EVERY 3 DATS
     Route: 062
  3. FOLIC ACID [Concomitant]
     Dosage: UNK
     Dates: start: 20100701
  4. EXJADE [Suspect]
     Indication: IRON OVERLOAD

REACTIONS (2)
  - PALPITATIONS [None]
  - SICKLE CELL ANAEMIA WITH CRISIS [None]
